FAERS Safety Report 24311314 (Version 1)
Quarter: 2024Q3

REPORT INFORMATION
  Report Type: Report from Study
  Country: US (occurrence: None)
  Receive Date: 20240912
  Receipt Date: 20240912
  Transmission Date: 20241017
  Serious: Yes (Hospitalization)
  Sender: ASTRAZENECA
  Company Number: 2024A204715

PATIENT
  Age: 498 Month
  Sex: Female

DRUGS (1)
  1. FASENRA [Suspect]
     Active Substance: BENRALIZUMAB
     Indication: Asthma
     Dosage: WEEK 0 STARTING 10/2023 THEN WEEK 4, AND 8, THEN EVERY 8 WEEKS THEREAFTER DATES UNKNOWN30MG/ML E...
     Route: 058
     Dates: start: 202310

REACTIONS (1)
  - Influenza [Unknown]
